FAERS Safety Report 22068480 (Version 1)
Quarter: 2023Q1

REPORT INFORMATION
  Report Type: Spontaneous
  Country: US (occurrence: None)
  Receive Date: 20230307
  Receipt Date: 20230307
  Transmission Date: 20230418
  Serious: Yes (Other)
  Sender: FDA-Public Use
  Company Number: 2023A048773

PATIENT
  Sex: Male

DRUGS (1)
  1. TAGRISSO [Suspect]
     Active Substance: OSIMERTINIB
     Route: 048

REACTIONS (7)
  - Thrombosis [Unknown]
  - Oxygen saturation decreased [Unknown]
  - Viral infection [Unknown]
  - Dyspnoea [Unknown]
  - Lung disorder [Unknown]
  - Product use issue [Unknown]
  - Drug ineffective [Unknown]
